FAERS Safety Report 7269360-0 (Version None)
Quarter: 2011Q1

REPORT INFORMATION
  Report Type: 
  Country: None (occurrence: None)
  Receive Date: 20110125
  Receipt Date: 20110110
  Transmission Date: 20110831
  Serious: Yes (Other)
  Sender: FDA-Public Use
  Company Number: 1000018218

PATIENT

DRUGS (3)
  1. ESCITALOPRAM OXALATE [Suspect]
     Dosage: ORAL
     Route: 048
  2. ESCITALOPRAM OXALATE [Suspect]
     Dosage: ORAL
     Route: 048
  3. MIRTAZAPINE [Suspect]

REACTIONS (1)
  - VIITH NERVE PARALYSIS [None]
